FAERS Safety Report 7993601-5 (Version None)
Quarter: 2011Q4

REPORT INFORMATION
  Report Type: 
  Country: None (occurrence: None)
  Receive Date: 20111219
  Receipt Date: 20111209
  Transmission Date: 20120403
  Serious: Yes (Hospitalization, Other)
  Sender: FDA-Public Use
  Company Number: US-MERCK-1103USA00069

PATIENT
  Age: 64 Year
  Sex: Female
  Weight: 86 kg

DRUGS (8)
  1. LEVOTHYROXINE SODIUM [Concomitant]
     Route: 048
  2. FOSAMAX [Suspect]
     Indication: OSTEOPOROSIS PROPHYLAXIS
     Route: 048
     Dates: start: 20000101, end: 20080101
  3. FOSAMAX [Suspect]
     Indication: OSTEOPOROSIS
     Route: 048
     Dates: start: 20000101, end: 20080101
  4. FOSAMAX [Suspect]
     Route: 048
     Dates: start: 20080601, end: 20090101
  5. VITAMINS (UNSPECIFIED) [Concomitant]
     Route: 048
     Dates: start: 20090301
  6. CALCIUM (UNSPECIFIED) [Concomitant]
     Route: 048
  7. FOSAMAX [Suspect]
     Route: 048
     Dates: start: 20080601, end: 20090101
  8. VITAMIN D (UNSPECIFIED) [Concomitant]
     Route: 048

REACTIONS (37)
  - BREAST CANCER [None]
  - HYPERCHOLESTEROLAEMIA [None]
  - OEDEMA [None]
  - CONSTIPATION [None]
  - HAEMORRHAGIC ANAEMIA [None]
  - TIBIA FRACTURE [None]
  - DYSLIPIDAEMIA [None]
  - SPINAL COLUMN STENOSIS [None]
  - HYPONATRAEMIA [None]
  - URINARY TRACT INFECTION [None]
  - TOOTH INFECTION [None]
  - PAIN IN EXTREMITY [None]
  - BRONCHITIS [None]
  - PLICA SYNDROME [None]
  - ROAD TRAFFIC ACCIDENT [None]
  - CONTUSION [None]
  - CORONARY ARTERY DISEASE [None]
  - FEMUR FRACTURE [None]
  - HYPERTENSION [None]
  - VULVOVAGINAL CANDIDIASIS [None]
  - TOOTH FRACTURE [None]
  - MYOPATHY [None]
  - BUNION [None]
  - DIABETIC NEUROPATHY [None]
  - MUSCLE STRAIN [None]
  - LOW TURNOVER OSTEOPATHY [None]
  - FALL [None]
  - BREAST CANCER IN SITU [None]
  - ADVERSE DRUG REACTION [None]
  - OSTEOARTHRITIS [None]
  - HYPERLIPIDAEMIA [None]
  - ALOPECIA [None]
  - GINGIVAL BLEEDING [None]
  - GASTROOESOPHAGEAL REFLUX DISEASE [None]
  - PYREXIA [None]
  - ARTHRALGIA [None]
  - ECCHYMOSIS [None]
